FAERS Safety Report 6004429-X (Version None)
Quarter: 2008Q4

REPORT INFORMATION
  Report Type: 
  Country: None (occurrence: None)
  Receive Date: 20081216
  Receipt Date: 20081209
  Transmission Date: 20090506
  Serious: Yes (Other)
  Sender: FDA-Public Use
  Company Number: JP-MERCK-0812USA00450

PATIENT
  Age: 49 Year
  Sex: Male

DRUGS (4)
  1. PEPCID RPD [Suspect]
     Indication: HELICOBACTER INFECTION
     Route: 048
     Dates: start: 20081119, end: 20081126
  2. MUCOSTA [Concomitant]
     Indication: HELICOBACTER INFECTION
     Route: 048
     Dates: start: 20080927, end: 20081126
  3. LANSAP [Concomitant]
     Indication: HELICOBACTER INFECTION
     Route: 048
     Dates: start: 20080927, end: 20081003
  4. RABEPRAZOLE SODIUM [Concomitant]
     Indication: HELICOBACTER INFECTION
     Route: 048
     Dates: start: 20081003, end: 20081119

REACTIONS (1)
  - DERMATITIS ALLERGIC [None]
